FAERS Safety Report 16430607 (Version 2)
Quarter: 2019Q4

REPORT INFORMATION
  Report Type: Spontaneous
  Country: DE (occurrence: DE)
  Receive Date: 20190614
  Receipt Date: 20191209
  Transmission Date: 20200122
  Serious: Yes (Other)
  Sender: FDA-Public Use
  Company Number: DE-ROCHE-2337013

PATIENT
  Age: 56 Year
  Sex: Male

DRUGS (10)
  1. EPINEPHRINE. [Concomitant]
     Active Substance: EPINEPHRINE
  2. ASPIRIN [ACETYLSALICYLIC ACID] [Concomitant]
     Active Substance: ASPIRIN
     Indication: ANTICOAGULANT THERAPY
  3. HEPARIN [Concomitant]
     Active Substance: HEPARIN SODIUM
     Indication: ANTICOAGULANT THERAPY
  4. MILRINONE [Concomitant]
     Active Substance: MILRINONE
  5. ENOXAPARIN [Concomitant]
     Active Substance: ENOXAPARIN
  6. NOREPINEPHRINE. [Concomitant]
     Active Substance: NOREPINEPHRINE
  7. HEPARINE [HEPARIN] [Concomitant]
     Active Substance: HEPARIN SODIUM
     Dosage: LOW DOSE
     Route: 042
  8. ACTILYSE [Suspect]
     Active Substance: ALTEPLASE
     Indication: DEVICE RELATED THROMBOSIS
     Dosage: 10 MG RT-PLASMINOGEN ACTIVATOR RT-PA FOR ONE MIN, FOLLOWED BY 10MG RT-PA INFUSION WITHIN 60 MINUTES.
     Route: 065
  9. DIPYRIDAMOLE. [Concomitant]
     Active Substance: DIPYRIDAMOLE
     Indication: ANTICOAGULANT THERAPY
  10. DOBUTAMINE [Concomitant]
     Active Substance: DOBUTAMINE HYDROCHLORIDE

REACTIONS (4)
  - Peripheral ischaemia [Unknown]
  - Haemolysis [Unknown]
  - Haemorrhage intracranial [Unknown]
  - Device related thrombosis [Unknown]
